FAERS Safety Report 9275836 (Version 4)
Quarter: 2015Q1

REPORT INFORMATION
  Report Type: Spontaneous
  Country: US (occurrence: US)
  Receive Date: 20130503
  Receipt Date: 20150317
  Transmission Date: 20150721
  Serious: No
  Sender: FDA-Public Use
  Company Number: US-009507513-1304USA017106

PATIENT
  Sex: Male
  Weight: 113.38 kg

DRUGS (3)
  1. PROPECIA [Suspect]
     Active Substance: FINASTERIDE
     Indication: ALOPECIA
     Dosage: 1 MG, QD
     Route: 048
     Dates: start: 20060109, end: 200804
  2. PROPECIA [Suspect]
     Active Substance: FINASTERIDE
     Dosage: 1 MG, QD
     Route: 048
     Dates: start: 2012
  3. PROPECIA [Suspect]
     Active Substance: FINASTERIDE
     Dosage: 1 MG, QD
     Route: 048
     Dates: start: 200706

REACTIONS (11)
  - Cyst removal [Unknown]
  - Vertigo positional [Recovered/Resolved]
  - Fatigue [Unknown]
  - Prostatic disorder [Recovered/Resolved]
  - Blood thyroid stimulating hormone increased [Unknown]
  - Rectal haemorrhage [Unknown]
  - Headache [Unknown]
  - Erectile dysfunction [Not Recovered/Not Resolved]
  - Keratomileusis [Unknown]
  - Sexual dysfunction [Not Recovered/Not Resolved]
  - Sinusitis [Unknown]

NARRATIVE: CASE EVENT DATE: 200610
